FAERS Safety Report 8540360-3 (Version None)
Quarter: 2012Q3

REPORT INFORMATION
  Report Type: 
  Country: None (occurrence: None)
  Receive Date: 20120726
  Receipt Date: 20120413
  Transmission Date: 20120928
  Serious: No
  Sender: FDA-Public Use
  Company Number: US-ASTRAZENECA-2010SE27840

PATIENT
  Age: 58 Year
  Sex: Female
  Weight: 61.2 kg

DRUGS (14)
  1. SEROQUEL [Suspect]
     Route: 048
     Dates: start: 20090201
  2. SEROQUEL [Suspect]
     Route: 048
  3. SEROQUEL [Suspect]
     Route: 048
  4. SEROQUEL [Suspect]
     Route: 048
  5. LORAZEPAM [Concomitant]
  6. SEROQUEL [Suspect]
     Route: 048
  7. TRILEPTAL [Concomitant]
     Route: 048
  8. SEROQUEL [Suspect]
     Route: 048
  9. SEROQUEL [Suspect]
     Route: 048
  10. SEROQUEL [Suspect]
     Route: 048
     Dates: start: 20090201
  11. SEROQUEL [Suspect]
     Indication: SLEEP DISORDER
     Route: 048
     Dates: start: 20050101
  12. SEROQUEL [Suspect]
     Indication: BIPOLAR DISORDER
     Route: 048
     Dates: start: 20050101
  13. TRILEPTAL [Concomitant]
     Route: 048
  14. EFFEXOR XR [Concomitant]

REACTIONS (10)
  - WEIGHT INCREASED [None]
  - DRUG DOSE OMISSION [None]
  - DRUG INEFFECTIVE [None]
  - DEPRESSION [None]
  - DYSKINESIA [None]
  - MALAISE [None]
  - MOOD SWINGS [None]
  - LIMB DISCOMFORT [None]
  - INSOMNIA [None]
  - MENOPAUSAL DEPRESSION [None]
